FAERS Safety Report 5724052-1 (Version None)
Quarter: 2008Q2

REPORT INFORMATION
  Report Type: 
  Country: None (occurrence: None)
  Receive Date: 20080430
  Receipt Date: 20080429
  Transmission Date: 20081010
  Serious: Yes (Other)
  Sender: FDA-Public Use
  Company Number: AU-BOEHRINGER INGELHEIM GMBH, GERMANY-2008-DE-02554GD

PATIENT
  Age: 41 Year
  Sex: Male

DRUGS (3)
  1. MORPHINE [Suspect]
     Indication: ABDOMINAL PAIN
     Route: 042
  2. MORPHINE [Suspect]
     Route: 042
  3. NUROFEN PLUS [Suspect]
     Dosage: ^A PACKET^ OF NUROFEN PLUS (CONTAINS 200 MG IBUPROFEN AND 12.8 MG CODEINE PHOSPHATE IN EACH TABLET)
     Route: 048

REACTIONS (3)
  - DRUG INEFFECTIVE [None]
  - GASTRIC ULCER PERFORATION [None]
  - PYREXIA [None]
